FAERS Safety Report 23947567 (Version 2)
Quarter: 2025Q1

REPORT INFORMATION
  Report Type: Spontaneous
  Country: US (occurrence: US)
  Receive Date: 20240606
  Receipt Date: 20250328
  Transmission Date: 20250409
  Serious: No
  Sender: PFIZER
  Company Number: US-PFIZER INC-PV202200129241

PATIENT
  Age: 53 Year
  Sex: Female

DRUGS (6)
  1. XELJANZ XR [Suspect]
     Active Substance: TOFACITINIB CITRATE
  2. GABAPENTIN [Concomitant]
     Active Substance: GABAPENTIN
  3. PRAVASTATIN [Concomitant]
     Active Substance: PRAVASTATIN
  4. PREDNISONE [Concomitant]
     Active Substance: PREDNISONE
  5. LISINOPRIL [Concomitant]
     Active Substance: LISINOPRIL
  6. ASPIRIN [Concomitant]
     Active Substance: ASPIRIN

REACTIONS (2)
  - Hypertension [Unknown]
  - Hypotension [Unknown]
